FAERS Safety Report 5622829-4 (Version None)
Quarter: 2008Q1

REPORT INFORMATION
  Report Type: 
  Country: None (occurrence: None)
  Receive Date: 20080212
  Receipt Date: 20080201
  Transmission Date: 20080703
  Serious: Yes (Hospitalization, Other)
  Sender: FDA-Public Use
  Company Number: JP-JNJFOC-20070504624

PATIENT
  Sex: Female
  Weight: 63 kg

DRUGS (59)
  1. REMICADE [Suspect]
     Route: 042
  2. REMICADE [Suspect]
     Route: 042
  3. REMICADE [Suspect]
     Route: 042
  4. REMICADE [Suspect]
     Route: 042
  5. REMICADE [Suspect]
     Route: 042
  6. REMICADE [Suspect]
     Route: 042
  7. REMICADE [Suspect]
     Route: 042
  8. REMICADE [Suspect]
     Route: 042
  9. REMICADE [Suspect]
     Route: 042
  10. REMICADE [Suspect]
     Route: 042
  11. REMICADE [Suspect]
     Route: 042
  12. REMICADE [Suspect]
     Route: 042
  13. REMICADE [Suspect]
     Route: 042
  14. REMICADE [Suspect]
     Route: 042
  15. REMICADE [Suspect]
     Route: 042
  16. REMICADE [Suspect]
     Route: 042
  17. REMICADE [Suspect]
     Route: 042
  18. REMICADE [Suspect]
     Route: 042
  19. REMICADE [Suspect]
     Route: 042
  20. REMICADE [Suspect]
     Indication: RHEUMATOID ARTHRITIS
     Route: 042
  21. METHOTREXATE [Suspect]
     Route: 048
  22. METHOTREXATE [Suspect]
     Route: 048
  23. METHOTREXATE [Suspect]
     Route: 048
  24. METHOTREXATE [Suspect]
     Indication: RHEUMATOID ARTHRITIS
     Route: 048
  25. ZOVIRAX [Suspect]
     Route: 042
  26. ZOVIRAX [Suspect]
     Indication: DRUG USE FOR UNKNOWN INDICATION
     Route: 042
  27. ANTIHISTAMINES [Concomitant]
     Indication: PROPHYLAXIS
  28. PREDNISOLONE [Concomitant]
     Route: 048
  29. BETAMETHASONE [Concomitant]
     Route: 048
  30. BETAMETHASONE [Concomitant]
     Route: 048
  31. BETAMETHASONE [Concomitant]
     Indication: RHEUMATOID ARTHRITIS
     Route: 048
  32. KENACORT [Concomitant]
     Indication: RHEUMATOID ARTHRITIS
     Dosage: 5-20 MG
  33. RIMATIL [Concomitant]
     Route: 048
  34. RIMATIL [Concomitant]
     Indication: RHEUMATOID ARTHRITIS
     Route: 048
  35. LOXONIN [Concomitant]
     Indication: RHEUMATOID ARTHRITIS
     Route: 048
  36. KETOPROFEN [Concomitant]
     Indication: RHEUMATOID ARTHRITIS
  37. MUCOSTA [Concomitant]
     Route: 048
  38. DOGMATYL [Concomitant]
     Route: 048
  39. ADRENAL HORMONE [Concomitant]
     Indication: RHEUMATOID ARTHRITIS
  40. VOLTAREN [Concomitant]
  41. VOLTAREN [Concomitant]
     Indication: RHEUMATOID ARTHRITIS
  42. ARTZ [Concomitant]
     Dosage: 1 CYL
  43. ARTZ [Concomitant]
     Dosage: 1 CYL
  44. ARTZ [Concomitant]
     Dosage: 1 CYL
  45. ARTZ [Concomitant]
     Dosage: 1 CYL
  46. ARTZ [Concomitant]
     Indication: RHEUMATOID ARTHRITIS
     Dosage: 1 CYL
  47. MS ONSHIPPU [Concomitant]
  48. MS ONSHIPPU [Concomitant]
  49. MS ONSHIPPU [Concomitant]
     Indication: RHEUMATOID ARTHRITIS
  50. FOLIAMIN [Concomitant]
     Route: 048
  51. FOLIAMIN [Concomitant]
     Indication: PROPHYLAXIS
     Route: 048
  52. ISODINE GARGLE [Concomitant]
  53. CLEAMINE [Concomitant]
     Indication: HEADACHE
     Route: 048
  54. HYDROCORTISONE ACETATE [Concomitant]
     Indication: ECZEMA
  55. ALLELOCK [Concomitant]
     Route: 048
  56. ALLELOCK [Concomitant]
     Route: 048
  57. ALLELOCK [Concomitant]
     Route: 048
  58. ALLELOCK [Concomitant]
     Route: 048
  59. ALLELOCK [Concomitant]
     Indication: PROPHYLAXIS
     Route: 048

REACTIONS (2)
  - HERPES ZOSTER [None]
  - RENAL IMPAIRMENT [None]
